FAERS Safety Report 4457133-3 (Version None)
Quarter: 2004Q3

REPORT INFORMATION
  Report Type: 
  Country: None (occurrence: None)
  Receive Date: 20040921
  Receipt Date: 20040913
  Transmission Date: 20050211
  Serious: Yes (Death, Other)
  Sender: FDA-Public Use
  Company Number: USA-2004-0014264

PATIENT
  Age: 52 Year
  Sex: Male

DRUGS (4)
  1. OXYCONTIN [Suspect]
     Dosage: 80 MG
  2. ROXICODONE [Suspect]
  3. MIRTAZAPINE [Suspect]
  4. BENZODIAZEPINE DERIVATIVES (BENZODIAZEPINE DERIVATIVES) TABLET [Suspect]

REACTIONS (26)
  - ALCOHOL USE [None]
  - AORTIC VALVE DISEASE [None]
  - ATHEROSCLEROSIS [None]
  - BACK PAIN [None]
  - CARDIAC FAILURE [None]
  - CARDIO-RESPIRATORY ARREST [None]
  - CARDIOMEGALY [None]
  - COMPLETED SUICIDE [None]
  - CONDITION AGGRAVATED [None]
  - CORONARY ARTERY ATHEROSCLEROSIS [None]
  - DEPRESSED LEVEL OF CONSCIOUSNESS [None]
  - DIABETIC NEUROPATHY [None]
  - DRUG ABUSER [None]
  - EMPHYSEMA [None]
  - HEPATIC CIRRHOSIS [None]
  - HEPATIC STEATOSIS [None]
  - HEPATITIS [None]
  - MEDICATION ERROR [None]
  - MITRAL VALVE DISEASE [None]
  - MULTIPLE DRUG OVERDOSE INTENTIONAL [None]
  - NEPHROSCLEROSIS [None]
  - OEDEMA [None]
  - PULMONARY CONGESTION [None]
  - PULMONARY FIBROSIS [None]
  - RESPIRATORY FAILURE [None]
  - VENTRICULAR HYPERTROPHY [None]
